FAERS Safety Report 6685359-7 (Version None)
Quarter: 2010Q2

REPORT INFORMATION
  Report Type: 
  Country: None (occurrence: None)
  Receive Date: 20100416
  Receipt Date: 20090812
  Transmission Date: 20101027
  Serious: No
  Sender: FDA-Public Use
  Company Number: US-AMGEN-KDL358585

PATIENT
  Sex: Female

DRUGS (1)
  1. SENSIPAR [Suspect]
     Indication: HYPERPARATHYROIDISM PRIMARY
     Dates: start: 20090701

REACTIONS (4)
  - BLOOD CALCIUM ABNORMAL [None]
  - FUNGAL INFECTION [None]
  - MUSCLE SPASMS [None]
  - NAUSEA [None]
